FAERS Safety Report 8224099-X (Version None)
Quarter: 2012Q1

REPORT INFORMATION
  Report Type: 
  Country: None (occurrence: None)
  Receive Date: 20120307
  Receipt Date: 20110407
  Transmission Date: 20120608
  Serious: No
  Sender: FDA-Public Use
  Company Number: PHHY2011US30101

PATIENT
  Age: 57 Year
  Sex: Female

DRUGS (11)
  1. AFINITOR [Suspect]
     Indication: RENAL TRANSPLANT
     Dosage: 1.5 MG
     Dates: start: 20110125, end: 20110304
  2. TACROLIMUS [Concomitant]
  3. ATENOLOL [Concomitant]
  4. RABEPRAZOLE SODIUM [Concomitant]
  5. ATORVASTATIN [Concomitant]
  6. RANITIDINE HYDROCHLORIDE [Concomitant]
  7. ESTRADIOL [Concomitant]
  8. VALACYCLOVIR [Concomitant]
  9. METFORMIN HCL [Concomitant]
  10. MYCOPHENOLATE MOFETIL [Concomitant]
  11. GLICLAZIDE (GLICLAZIDE) [Concomitant]

REACTIONS (11)
  - PRURITUS [None]
  - ARTHRALGIA [None]
  - DECREASED APPETITE [None]
  - DIARRHOEA [None]
  - URTICARIA [None]
  - COUGH [None]
  - DRY SKIN [None]
  - RASH [None]
  - PALPITATIONS [None]
  - FATIGUE [None]
  - DIZZINESS [None]
